FAERS Safety Report 23945951 (Version 1)
Quarter: 2024Q2

REPORT INFORMATION
  Report Type: Spontaneous
  Country: CN (occurrence: CN)
  Receive Date: 20240606
  Receipt Date: 20240606
  Transmission Date: 20240716
  Serious: Yes (Hospitalization, Other)
  Sender: FDA-Public Use
  Company Number: CN-009507513-2406CHN000407

PATIENT
  Age: 58 Year
  Sex: Male
  Weight: 65 kg

DRUGS (3)
  1. KEYTRUDA [Suspect]
     Active Substance: PEMBROLIZUMAB
     Indication: Rectal cancer
     Dosage: 200 MILLIGRAM, ONCE
     Route: 041
     Dates: start: 20240502, end: 20240502
  2. OXALIPLATIN [Suspect]
     Active Substance: OXALIPLATIN
     Indication: Rectal cancer
     Dosage: 230 MILLIGRAM, ONCE
     Route: 041
     Dates: start: 20240502, end: 20240502
  3. CAPECITABINE [Suspect]
     Active Substance: CAPECITABINE
     Indication: Rectal cancer
     Dosage: 1500 MILLIGRAM, BID
     Route: 048
     Dates: start: 20240503, end: 20240507

REACTIONS (5)
  - Hepatic function abnormal [Recovering/Resolving]
  - Hepatitis B [Unknown]
  - Asthenia [Recovering/Resolving]
  - Drug-induced liver injury [Unknown]
  - Product use issue [Unknown]

NARRATIVE: CASE EVENT DATE: 20240502
